FAERS Safety Report 7761387-5 (Version None)
Quarter: 2011Q3

REPORT INFORMATION
  Report Type: 
  Country: None (occurrence: None)
  Receive Date: 20110920
  Receipt Date: 20110915
  Transmission Date: 20111222
  Serious: No
  Sender: FDA-Public Use
  Company Number: US-PFIZER INC-2011218894

PATIENT
  Sex: Female
  Weight: 68.027 kg

DRUGS (1)
  1. ADVIL COLD AND SINUS [Suspect]
     Dosage: 200/30 MG, UNK
     Route: 048
     Dates: start: 20110914, end: 20110915

REACTIONS (2)
  - DIZZINESS [None]
  - INSOMNIA [None]
